FAERS Safety Report 10233446 (Version 1)
Quarter: 2014Q2

REPORT INFORMATION
  Report Type: Spontaneous
  Country: US (occurrence: None)
  Receive Date: 20140611
  Receipt Date: 20140611
  Transmission Date: 20141212
  Serious: Yes (Hospitalization)
  Sender: FDA-Public Use
  Company Number: None

PATIENT
  Sex: Female
  Weight: 92.3 kg

DRUGS (2)
  1. SIMEPREVIR [Suspect]
     Indication: CHRONIC HEPATITIS C
     Dosage: THERAPY DATE?APRIL 18-PRESENT
     Route: 048
  2. SOFOSBUVIR [Suspect]
     Indication: CHRONIC HEPATITIS C
     Dosage: THERAPY DATES?APRIL 18-PRESENT
     Route: 048

REACTIONS (13)
  - Dizziness [None]
  - Ventricular tachycardia [None]
  - Syncope [None]
  - Nausea [None]
  - Fall [None]
  - Convulsion [None]
  - Renal failure acute [None]
  - Hypotension [None]
  - Hyponatraemia [None]
  - Cardiac arrest [None]
  - Cardiac failure [None]
  - Device related infection [None]
  - Infection [None]
